FAERS Safety Report 4685958-8 (Version None)
Quarter: 2005Q2

REPORT INFORMATION
  Report Type: 
  Country: None (occurrence: None)
  Receive Date: 20050609
  Receipt Date: 20050531
  Transmission Date: 20051028
  Serious: Yes (Other)
  Sender: FDA-Public Use
  Company Number: PHHO2005BE08578

PATIENT
  Age: 55 Year
  Sex: Male
  Weight: 100 kg

DRUGS (2)
  1. DIOVAN HCT [Suspect]
     Indication: HYPERTENSION
     Dosage: 160/12MG, QD
     Route: 048
     Dates: start: 20050323, end: 20050415
  2. TERRA-CORTRIL [Concomitant]

REACTIONS (2)
  - AGGRESSION [None]
  - VERTIGO [None]
